FAERS Safety Report 6989381-2 (Version None)
Quarter: 2010Q3

REPORT INFORMATION
  Report Type: 
  Country: None (occurrence: None)
  Receive Date: 20100916
  Receipt Date: 20091208
  Transmission Date: 20110219
  Serious: Yes (Other)
  Sender: FDA-Public Use
  Company Number: US-PFIZER INC-2009282375

PATIENT
  Sex: Male

DRUGS (2)
  1. LYRICA [Suspect]
     Indication: FIBROMYALGIA
     Dosage: 50 MG, 1X/DAY
     Dates: start: 20091002, end: 20091009
  2. FIORICET [Concomitant]
     Dosage: UNK

REACTIONS (6)
  - BACK PAIN [None]
  - DRUG SCREEN POSITIVE [None]
  - EYE PAIN [None]
  - HEADACHE [None]
  - MUSCLE FATIGUE [None]
  - VISION BLURRED [None]
